FAERS Safety Report 5684738-4 (Version None)
Quarter: 2008Q1

REPORT INFORMATION
  Report Type: 
  Country: None (occurrence: None)
  Receive Date: 20080328
  Receipt Date: 20070813
  Transmission Date: 20080703
  Serious: No
  Sender: FDA-Public Use
  Company Number: US-BRISTOL-MYERS SQUIBB COMPANY-13876453

PATIENT
  Age: 65 Year
  Sex: Male
  Weight: 58 kg

DRUGS (9)
  1. ERBITUX [Suspect]
     Indication: TONGUE NEOPLASM MALIGNANT STAGE UNSPECIFIED
     Dates: start: 20061201
  2. LANOXIN [Concomitant]
  3. CARDIZEM [Concomitant]
  4. NEURONTIN [Concomitant]
  5. LANTUS [Concomitant]
  6. HUMALOG [Concomitant]
  7. TYLENOL (CAPLET) [Concomitant]
     Indication: PREMEDICATION
  8. BENADRYL [Concomitant]
     Indication: PREMEDICATION
  9. ALOXI [Concomitant]
     Indication: PREMEDICATION

REACTIONS (1)
  - HEPATIC ENZYME INCREASED [None]
